FAERS Safety Report 5129134-3 (Version None)
Quarter: 2006Q4

REPORT INFORMATION
  Report Type: 
  Country: None (occurrence: None)
  Receive Date: 20061011
  Receipt Date: 20060922
  Transmission Date: 20070319
  Serious: Yes (Death)
  Sender: FDA-Public Use
  Company Number: CA200609004322

PATIENT
  Age: 72 Year
  Sex: 0

DRUGS (1)
  1. XIGRIS [Suspect]
     Indication: SEPSIS
     Dates: start: 20060901

REACTIONS (1)
  - GENERAL PHYSICAL HEALTH DETERIORATION [None]
